FAERS Safety Report 18790739 (Version 7)
Quarter: 2024Q2

REPORT INFORMATION
  Report Type: Spontaneous
  Country: US (occurrence: US)
  Receive Date: 20210126
  Receipt Date: 20240412
  Transmission Date: 20240716
  Serious: Yes (Other)
  Sender: FDA-Public Use
  Company Number: US-PFIZER INC-2021057501

PATIENT
  Age: 66 Year
  Sex: Female

DRUGS (2)
  1. IBRANCE [Suspect]
     Active Substance: PALBOCICLIB
     Indication: Breast cancer metastatic
     Dosage: 125 MG
     Dates: start: 20201220
  2. IBRANCE [Suspect]
     Active Substance: PALBOCICLIB
     Dosage: (1 Q2 DAYS FOR 21 DAYS FOR A TOTAL OF 11 TABLETS PER CYCLE)
     Dates: end: 20230207

REACTIONS (4)
  - Agranulocytosis [Unknown]
  - Tumour pain [Unknown]
  - Off label use [Unknown]
  - Product use issue [Unknown]
